FAERS Safety Report 10227064 (Version 2)
Quarter: 2014Q2

REPORT INFORMATION
  Report Type: Spontaneous
  Country: AU (occurrence: AU)
  Receive Date: 20140610
  Receipt Date: 20140610
  Transmission Date: 20141212
  Serious: Yes (Disabling)
  Sender: FDA-Public Use
  Company Number: AU-SHIRE-AU201401978

PATIENT
  Age: 66 Year
  Sex: Female
  Weight: 115 kg

DRUGS (6)
  1. MEZAVANT [Suspect]
     Indication: CROHN^S DISEASE
     Dosage: 4.8 G, 1X/DAY:QD (4) 1.2G TABLETS IN THE MORNING)
     Route: 048
     Dates: start: 20140320, end: 20140521
  2. MEZAVANT [Suspect]
     Dosage: 3.6 MG (THREE TABLETS), 1X/DAY:QD
     Route: 048
     Dates: start: 20140522
  3. VENLAFAXINE HYDROCHLORIDE [Concomitant]
     Indication: DEPRESSION
     Dosage: 225 MG, 1X/DAY:QD
     Route: 048
  4. CANDESARTAN [Concomitant]
     Indication: BLOOD PRESSURE MANAGEMENT
     Dosage: 32 MG, 1X/DAY:QD
     Route: 048
  5. TAMOXIFEN [Concomitant]
     Indication: BREAST CANCER
     Dosage: 20 MG, 1X/DAY:QD
     Route: 048
  6. BUDESONIDE W/FORMOTEROL [Concomitant]
     Indication: ASTHMA
     Dosage: UNK (200?G/6?G), 1X/DAY:QD
     Route: 055

REACTIONS (2)
  - Depression [Not Recovered/Not Resolved]
  - Off label use [Not Recovered/Not Resolved]
